FAERS Safety Report 10881554 (Version 2)
Quarter: 2015Q1

REPORT INFORMATION
  Report Type: Report from Study
  Country: DE (occurrence: DE)
  Receive Date: 20150303
  Receipt Date: 20150318
  Transmission Date: 20150721
  Serious: No
  Sender: FDA-Public Use
  Company Number: DE-BEH-2015049062

PATIENT
  Age: 61 Year
  Sex: Female
  Weight: 68 kg

DRUGS (7)
  1. PRIVIGEN [Suspect]
     Active Substance: HUMAN IMMUNOGLOBULIN G
     Dosage: INFUSION RATE MIN. 3 ML/MIN; MAX. 4 ML/MIN
     Route: 042
     Dates: start: 20140903, end: 20140903
  2. PRIVIGEN [Suspect]
     Active Substance: HUMAN IMMUNOGLOBULIN G
     Dosage: INFUSION RATE MIN. 3 ML/MIN; MAX. 4 ML/MIN
     Route: 042
     Dates: start: 20141202, end: 20141202
  3. PRIVIGEN [Suspect]
     Active Substance: HUMAN IMMUNOGLOBULIN G
     Dosage: INFUSION RATE MIN. 3 ML/MIN; MAX. 4 ML/MIN
     Route: 042
     Dates: start: 20140804, end: 20140804
  4. JODTHYROX [Concomitant]
     Active Substance: LEVOTHYROXINE SODIUM\POTASSIUM IODIDE
  5. PRIVIGEN [Suspect]
     Active Substance: HUMAN IMMUNOGLOBULIN G
     Indication: IMMUNODEFICIENCY
     Dosage: INFUSION RATE MIN. 3 ML/MIN; MAX. 4 ML/MIN
     Route: 042
     Dates: start: 20140707, end: 20140707
  6. PRIVIGEN [Suspect]
     Active Substance: HUMAN IMMUNOGLOBULIN G
     Dosage: INFUSION RATE MIN. 3 ML/MIN; MAX. 4 ML/MIN
     Route: 042
     Dates: start: 20140930, end: 20140930
  7. PRIVIGEN [Suspect]
     Active Substance: HUMAN IMMUNOGLOBULIN G
     Dosage: INFUSION RATE MIN. 3 ML/MIN; MAX. 4 ML/MIN
     Route: 042
     Dates: start: 20141028, end: 20141028

REACTIONS (1)
  - Herpes zoster [Recovering/Resolving]

NARRATIVE: CASE EVENT DATE: 20140901
